FAERS Safety Report 24579880 (Version 1)
Quarter: 2024Q4

REPORT INFORMATION
  Report Type: Report from Study
  Country: AU (occurrence: AU)
  Receive Date: 20241105
  Receipt Date: 20241105
  Transmission Date: 20250115
  Serious: Yes (Death)
  Sender: ITALFARMACO SPA
  Company Number: AU-ITALFARMACO SPA-2164391

PATIENT
  Age: 70 Year

DRUGS (1)
  1. RILUZOLE [Suspect]
     Active Substance: RILUZOLE
     Indication: Motor neurone disease

REACTIONS (1)
  - Death [Fatal]
